FAERS Safety Report 10178293 (Version 1)
Quarter: 2014Q2

REPORT INFORMATION
  Report Type: Not Available
  Country: US (occurrence: None)
  Receive Date: 20140516
  Receipt Date: 20140516
  Transmission Date: 20141212
  Serious: Yes (Other)
  Sender: FDA-Public Use
  Company Number: None

PATIENT
  Age: 85 Year
  Sex: Female
  Weight: 65.77 kg

DRUGS (1)
  1. LEVOTHYROXINE [Suspect]
     Indication: THYROID DISORDER
     Dosage: ONE  TABLET  BY MOUNTH  ONCE DAILY
     Route: 048
     Dates: start: 20131202, end: 20140512

REACTIONS (4)
  - Somnolence [None]
  - Abnormal behaviour [None]
  - Laboratory test abnormal [None]
  - Product substitution issue [None]
